FAERS Safety Report 25426802 (Version 1)
Quarter: 2025Q2

REPORT INFORMATION
  Report Type: Spontaneous
  Country: CA (occurrence: None)
  Receive Date: 20250612
  Receipt Date: 20250612
  Transmission Date: 20250716
  Serious: Yes (Life-Threatening)
  Sender: ADIENNE PHARMA & BIOTECH
  Company Number: CA-ADIENNEP-2025AD000368

PATIENT
  Age: 17 Year
  Sex: Male
  Weight: 71 kg

DRUGS (28)
  1. THIOTEPA [Suspect]
     Active Substance: THIOTEPA
     Indication: Bone marrow transplant
     Route: 042
  2. FLUDARABINE [Suspect]
     Active Substance: FLUDARABINE PHOSPHATE
     Indication: Bone marrow transplant
     Route: 042
  3. METHOTREXATE [Suspect]
     Active Substance: METHOTREXATE
     Indication: Bone marrow transplant
     Route: 042
  4. TREOSULFAN [Suspect]
     Active Substance: TREOSULFAN
     Indication: Bone marrow transplant
     Route: 042
  5. ACETAMINOPHEN [Concomitant]
     Active Substance: ACETAMINOPHEN
  6. ALTEPLASE [Concomitant]
     Active Substance: ALTEPLASE
  7. AMLODIPINE [Concomitant]
     Active Substance: AMLODIPINE BESYLATE
  8. AMOXICILLIN [Concomitant]
     Active Substance: AMOXICILLIN
  9. THYMOCYTE IMMUNE GLOBULIN NOS [Concomitant]
     Active Substance: THYMOCYTE IMMUNE GLOBULIN NOS
  10. CALCIUM [Concomitant]
     Active Substance: CALCIUM
  11. CEFAZOLIN [Concomitant]
     Active Substance: CEFAZOLIN
  12. CEPHALEXIN [Concomitant]
     Active Substance: CEPHALEXIN
  13. CETIRIZINE [Concomitant]
     Active Substance: CETIRIZINE HYDROCHLORIDE
  14. CYCLOSPORINE [Concomitant]
     Active Substance: CYCLOSPORINE
  15. FAMOTIDINE [Concomitant]
     Active Substance: FAMOTIDINE
  16. LEVETIRACETAM [Concomitant]
     Active Substance: LEVETIRACETAM
  17. MAGNESIUM [Concomitant]
     Active Substance: MAGNESIUM
  18. MELATONIN [Concomitant]
     Active Substance: MELATONIN
  19. METHYLPREDNISOLONE [Concomitant]
     Active Substance: METHYLPREDNISOLONE
  20. MICAFUNGIN FOR INJECTION SINGLE USE [Concomitant]
  21. OLANZAPINE [Concomitant]
     Active Substance: OLANZAPINE
  22. ONDANSETRON [Concomitant]
     Active Substance: ONDANSETRON
  23. PREDNISONE [Concomitant]
     Active Substance: PREDNISONE
  24. PREVYMIS [Concomitant]
     Active Substance: LETERMOVIR
  25. TACROLIMUS [Concomitant]
     Active Substance: TACROLIMUS
  26. URSODIOL [Concomitant]
     Active Substance: URSODIOL
  27. CHOLECALCIFEROL [Concomitant]
     Active Substance: CHOLECALCIFEROL
  28. POLYETHYLENE GLYCOL [Concomitant]
     Active Substance: POLYETHYLENE GLYCOL

REACTIONS (4)
  - Parenteral nutrition [Recovered/Resolved]
  - Mucosal inflammation [Recovered/Resolved]
  - Diarrhoea [Recovered/Resolved]
  - Aplastic anaemia [Recovered/Resolved]
